FAERS Safety Report 7386705-1 (Version None)
Quarter: 2011Q1

REPORT INFORMATION
  Report Type: 
  Country: None (occurrence: None)
  Receive Date: 20110331
  Receipt Date: 20110329
  Transmission Date: 20110831
  Serious: Yes (Other)
  Sender: FDA-Public Use
  Company Number: JP-PFIZER INC-2011070165

PATIENT
  Age: 67 Year
  Sex: Male

DRUGS (2)
  1. LYRICA [Suspect]
     Dosage: UNK
     Route: 048
     Dates: start: 20101101
  2. GLUFAST [Concomitant]
     Indication: DIABETES MELLITUS
     Dosage: 15 MG/DAY
     Route: 048
     Dates: start: 20090101

REACTIONS (1)
  - HYPERGLYCAEMIA [None]
